FAERS Safety Report 5288379-2 (Version None)
Quarter: 2007Q1

REPORT INFORMATION
  Report Type: 
  Country: None (occurrence: None)
  Receive Date: 20070116
  Receipt Date: 20060516
  Transmission Date: 20070707
  Serious: Yes (Life-Threatening, Hospitalization)
  Sender: FDA-Public Use
  Company Number: FEI2006-0710

PATIENT
  Age: 30 Year
  Sex: Female
  Weight: 85.7298 kg

DRUGS (1)
  1. INTRAUTERINE COPPER CONTRACEPTIVE [Suspect]
     Indication: CONTRACEPTION
     Dosage: INTRA-UTERINE
     Route: 015
     Dates: start: 20060227, end: 20060405

REACTIONS (2)
  - ECTOPIC PREGNANCY [None]
  - PELVIC PAIN [None]
